FAERS Safety Report 14730527 (Version 2)
Quarter: 2018Q3

REPORT INFORMATION
  Report Type: Report from Study
  Country: US (occurrence: US)
  Receive Date: 20180406
  Receipt Date: 20180816
  Transmission Date: 20181010
  Serious: Yes (Other)
  Sender: FDA-Public Use
  Company Number: US-MYLANLABS-2018M1017785

PATIENT
  Sex: Female
  Weight: 122 kg

DRUGS (1)
  1. GLATIRAMER ACETATE INJECTION [Suspect]
     Active Substance: GLATIRAMER ACETATE
     Indication: RELAPSING-REMITTING MULTIPLE SCLEROSIS
     Dosage: 40 MG, 3XW
     Route: 058
     Dates: start: 20171031

REACTIONS (9)
  - Malaise [Unknown]
  - Skin disorder [Unknown]
  - Staphylococcal infection [Unknown]
  - Pain [Unknown]
  - Asthenia [Unknown]
  - Hypersensitivity [Unknown]
  - Scar [Not Recovered/Not Resolved]
  - Depression [Unknown]
  - Rash [Recovered/Resolved]
